FAERS Safety Report 4725605-X (Version None)
Quarter: 2005Q3

REPORT INFORMATION
  Report Type: 
  Country: None (occurrence: None)
  Receive Date: 20050727
  Receipt Date: 20050718
  Transmission Date: 20060218
  Serious: Yes (Life-Threatening, Hospitalization)
  Sender: FDA-Public Use
  Company Number: US-KINGPHARMUSA00001-K200500972

PATIENT
  Age: 50 Year
  Sex: Male

DRUGS (2)
  1. QUIBRON-T/SR [Suspect]
     Indication: BRONCHITIS CHRONIC
     Dosage: 300 MG 1/3, BID
     Route: 048
     Dates: start: 20050622, end: 20050623
  2. AERIUS [Suspect]
     Indication: RHINITIS ALLERGIC
     Dosage: 5 MG, QD
     Route: 048
     Dates: start: 20050622, end: 20050623

REACTIONS (1)
  - DYSPNOEA EXACERBATED [None]
